FAERS Safety Report 23177110 (Version 1)
Quarter: 2023Q4

REPORT INFORMATION
  Report Type: Spontaneous
  Country: US (occurrence: US)
  Receive Date: 20231113
  Receipt Date: 20231113
  Transmission Date: 20240109
  Serious: No
  Sender: FDA-Public Use
  Company Number: US-SA-SAC20231106000261

PATIENT
  Sex: Female
  Weight: 47.173 kg

DRUGS (3)
  1. DUPIXENT [Suspect]
     Active Substance: DUPILUMAB
     Indication: Dermatitis atopic
     Dosage: 300 MG, QOW
     Route: 058
  2. VITAMIN B12 [Concomitant]
     Active Substance: CYANOCOBALAMIN
  3. ADDERALL [Concomitant]
     Active Substance: AMPHETAMINE ASPARTATE\AMPHETAMINE SULFATE\DEXTROAMPHETAMINE SACCHARATE\DEXTROAMPHETAMINE SULFATE

REACTIONS (4)
  - Dermatitis atopic [Unknown]
  - Pruritus [Unknown]
  - Skin exfoliation [Unknown]
  - Eyelid sensory disorder [Unknown]
